FAERS Safety Report 25834282 (Version 1)
Quarter: 2025Q3

REPORT INFORMATION
  Report Type: Report from Study
  Country: US (occurrence: US)
  Receive Date: 20250923
  Receipt Date: 20250923
  Transmission Date: 20251021
  Serious: No
  Sender: DECIPHERA PHARMACEUTICALS
  Company Number: US-DECIPHERA PHARMACEUTICALS LLC-2025US001143

PATIENT
  Age: 39 Year
  Sex: Female

DRUGS (2)
  1. ROMVIMZA [Suspect]
     Active Substance: VIMSELTINIB
     Indication: Connective tissue neoplasm
     Dosage: 30 MG TWICE WEEKLY , AT LEAST 72 HOURS APART (MONDAY AND THURSDAY)
     Route: 048
     Dates: start: 20250728
  2. ROMVIMZA [Suspect]
     Active Substance: VIMSELTINIB
     Indication: Soft tissue neoplasm

REACTIONS (4)
  - Dyspnoea [Unknown]
  - Weight increased [Unknown]
  - Nausea [Unknown]
  - Face oedema [Unknown]

NARRATIVE: CASE EVENT DATE: 20250908
